FAERS Safety Report 8544963-1 (Version None)
Quarter: 2012Q3

REPORT INFORMATION
  Report Type: 
  Country: None (occurrence: None)
  Receive Date: 20120727
  Receipt Date: 20120112
  Transmission Date: 20120928
  Serious: Yes (Hospitalization, Other)
  Sender: FDA-Public Use
  Company Number: US-ROCHE-1091187

PATIENT
  Sex: Female

DRUGS (2)
  1. XOLAIR [Suspect]
     Indication: ASTHMA
  2. XOLAIR [Suspect]
     Indication: RHINITIS ALLERGIC

REACTIONS (5)
  - ECZEMA [None]
  - UNEVALUABLE EVENT [None]
  - BRONCHIAL HYPERREACTIVITY [None]
  - ASTHMA [None]
  - RHINITIS ALLERGIC [None]
